FAERS Safety Report 24055926 (Version 3)
Quarter: 2024Q4

REPORT INFORMATION
  Report Type: Spontaneous
  Country: DE (occurrence: DE)
  Receive Date: 20240705
  Receipt Date: 20241009
  Transmission Date: 20250114
  Serious: Yes (Other)
  Sender: NOVARTIS
  Company Number: DE-DCGMA-24203546

PATIENT
  Age: 50 Year
  Sex: Male
  Weight: 64 kg

DRUGS (2)
  1. LEQVIO [Suspect]
     Active Substance: INCLISIRAN SODIUM
     Indication: Hypercholesterolaemia
     Dosage: UNK (1 AMPULLE)
     Route: 065
     Dates: start: 20231020
  2. LEVOTHYROXINE SODIUM [Concomitant]
     Active Substance: LEVOTHYROXINE SODIUM
     Indication: Autoimmune thyroiditis
     Dosage: 112 UG, QD
     Route: 065

REACTIONS (3)
  - Muscle haemorrhage [Not Recovered/Not Resolved]
  - Rhabdomyolysis [Not Recovered/Not Resolved]
  - Paralysis [Unknown]

NARRATIVE: CASE EVENT DATE: 20240305
